FAERS Safety Report 5294696-2 (Version None)
Quarter: 2007Q2

REPORT INFORMATION
  Report Type: 
  Country: None (occurrence: None)
  Receive Date: 20070412
  Receipt Date: 20070402
  Transmission Date: 20071010
  Serious: Yes (Death)
  Sender: FDA-Public Use
  Company Number: US-AMGEN-US212782

PATIENT
  Sex: Female

DRUGS (15)
  1. AMG 706 [Suspect]
     Indication: METASTATIC NEOPLASM
     Route: 048
     Dates: start: 20070209, end: 20070225
  2. PANITUMUMAB [Suspect]
     Indication: METASTATIC NEOPLASM
     Route: 042
     Dates: start: 20070209, end: 20070209
  3. CISPLATIN [Concomitant]
     Route: 042
  4. GEMCITABINE HCL [Concomitant]
     Route: 042
  5. DARVOCET-N 100 [Concomitant]
     Route: 048
  6. ZINC [Concomitant]
     Route: 048
     Dates: start: 20020101
  7. PEPCID [Concomitant]
     Route: 048
     Dates: start: 20070214
  8. OXYCONTIN [Concomitant]
     Route: 048
     Dates: start: 20070214
  9. PANCREASE [Concomitant]
     Route: 048
     Dates: start: 20020401
  10. LEVSIN [Concomitant]
     Dates: start: 20000101
  11. MIDRIN [Concomitant]
     Route: 048
     Dates: start: 19960101
  12. CENTRUM SILVER [Concomitant]
     Route: 048
     Dates: start: 20020101
  13. VITAMIN B-12 [Concomitant]
     Route: 048
     Dates: start: 20020101
  14. VITAMIN B6 [Concomitant]
     Route: 048
     Dates: start: 20020101
  15. PERCOCET [Concomitant]
     Route: 048
     Dates: start: 20070208

REACTIONS (1)
  - SUDDEN DEATH [None]
